FAERS Safety Report 8440271 (Version 4)
Quarter: 2014Q3

REPORT INFORMATION
  Report Type: Spontaneous
  Country: US (occurrence: US)
  Receive Date: 20120305
  Receipt Date: 20140808
  Transmission Date: 20150326
  Serious: Yes (Other)
  Sender: FDA-Public Use
  Company Number: US-US-EMD SERONO, INC.-7115449

PATIENT
  Sex: Female

DRUGS (3)
  1. REBIF [Suspect]
     Active Substance: INTERFERON BETA-1A
     Indication: PRODUCT USED FOR UNKNOWN INDICATION
     Route: 058
     Dates: end: 2007
  2. REBIF [Suspect]
     Active Substance: INTERFERON BETA-1A
     Route: 057
     Dates: start: 20120402
  3. REBIF [Suspect]
     Active Substance: INTERFERON BETA-1A
     Route: 058
     Dates: end: 2012

REACTIONS (4)
  - Influenza like illness [Unknown]
  - Injection site erythema [Recovered/Resolved]
  - Immunosuppression [Unknown]
  - Atypical pneumonia [Recovered/Resolved]
